FAERS Safety Report 24376165 (Version 1)
Quarter: 2024Q3

REPORT INFORMATION
  Report Type: Spontaneous
  Country: US (occurrence: None)
  Receive Date: 20240926
  Receipt Date: 20240926
  Transmission Date: 20241017
  Serious: No
  Sender: Public
  Company Number: None

PATIENT
  Age: 37 Year
  Sex: Male

DRUGS (1)
  1. CARIPRAZINE [Suspect]
     Active Substance: CARIPRAZINE
     Indication: Bipolar I disorder
     Dosage: FREQUENCY : DAILY;?
     Route: 048

REACTIONS (7)
  - Tardive dyskinesia [None]
  - Dry mouth [None]
  - Trismus [None]
  - Muscle twitching [None]
  - Bruxism [None]
  - Tooth injury [None]
  - Drug ineffective [None]

NARRATIVE: CASE EVENT DATE: 20230213
